FAERS Safety Report 5744227-5 (Version None)
Quarter: 2008Q2

REPORT INFORMATION
  Report Type: 
  Country: None (occurrence: None)
  Receive Date: 20080516
  Receipt Date: 20080516
  Transmission Date: 20081010
  Serious: Yes (Other)
  Sender: FDA-Public Use
  Company Number: None

PATIENT
  Age: 53 Year
  Sex: Female
  Weight: 190 kg

DRUGS (1)
  1. METHIMAZOLE 10 MG NEXTRX [Suspect]
     Indication: HYPERTHYROIDISM
     Dosage: 10 MG ONCE A DAY PO
     Route: 048
     Dates: start: 20080401, end: 20080409

REACTIONS (5)
  - DRUG INEFFECTIVE [None]
  - HYPERTENSION [None]
  - NAUSEA [None]
  - PHARMACEUTICAL PRODUCT COMPLAINT [None]
  - VERTIGO [None]
